FAERS Safety Report 25173964 (Version 1)
Quarter: 2025Q2

REPORT INFORMATION
  Report Type: Spontaneous
  Country: US (occurrence: US)
  Receive Date: 20250408
  Receipt Date: 20250408
  Transmission Date: 20250717
  Serious: No
  Sender: PFIZER
  Company Number: US-PFIZER INC-PV202300097363

PATIENT
  Age: 26 Year
  Sex: Male

DRUGS (1)
  1. EUCRISA [Suspect]
     Active Substance: CRISABOROLE

REACTIONS (4)
  - Pyrexia [Unknown]
  - Illness [Unknown]
  - Influenza [Unknown]
  - Eczema [Unknown]
